FAERS Safety Report 4564482-7 (Version None)
Quarter: 2005Q1

REPORT INFORMATION
  Report Type: 
  Country: None (occurrence: None)
  Receive Date: 20050126
  Receipt Date: 20041229
  Transmission Date: 20050727
  Serious: No
  Sender: FDA-Public Use
  Company Number: A01200406527

PATIENT
  Age: 47 Year
  Sex: Female

DRUGS (2)
  1. ZOLPIDEM TARTRATE [Suspect]
     Indication: SLEEP DISORDER
     Dosage: 10 MG OD / 5 MG ONE DAY AND 2.5 MG THE FOLLOWING DAY. ORAL
     Route: 048
     Dates: start: 20020101
  2. BISOPROLOL FUMARATE [Concomitant]

REACTIONS (4)
  - DISTURBANCE IN ATTENTION [None]
  - FATIGUE [None]
  - LIVER DISORDER [None]
  - SLEEP APNOEA SYNDROME [None]
